FAERS Safety Report 9359938 (Version 2)
Quarter: 2014Q2

REPORT INFORMATION
  Report Type: Spontaneous
  Country: US (occurrence: None)
  Receive Date: 20130608
  Receipt Date: 20140617
  Transmission Date: 20141212
  Serious: No
  Sender: FDA-Public Use
  Company Number: 2013CT000024

PATIENT
  Sex: Male

DRUGS (1)
  1. KORLYM [Suspect]
     Indication: CUSHING^S SYNDROME
     Route: 048
     Dates: start: 201205, end: 20130401

REACTIONS (6)
  - Muscle spasms [None]
  - Blood cortisol abnormal [None]
  - Malaise [None]
  - Weight decreased [None]
  - Nausea [None]
  - Insomnia [None]
